FAERS Safety Report 24234993 (Version 1)
Quarter: 2024Q3

REPORT INFORMATION
  Report Type: Spontaneous
  Country: US (occurrence: None)
  Receive Date: 20240821
  Receipt Date: 20240821
  Transmission Date: 20241017
  Serious: Yes (Hospitalization)
  Sender: Public
  Company Number: None

PATIENT
  Age: 68 Year
  Sex: Female

DRUGS (3)
  1. WINREVAIR [Suspect]
     Active Substance: SOTATERCEPT-CSRK
     Dosage: OTHER FREQUENCY : EVERY3WEEKS;?
     Route: 058
     Dates: start: 202406
  2. TADALAFIL [Concomitant]
  3. C-TREPOSTINIL RM [Concomitant]

REACTIONS (1)
  - Fluid retention [None]

NARRATIVE: CASE EVENT DATE: 20240817
